FAERS Safety Report 8046342-2 (Version None)
Quarter: 2012Q1

REPORT INFORMATION
  Report Type: 
  Country: None (occurrence: None)
  Receive Date: 20120113
  Receipt Date: 20120104
  Transmission Date: 20120608
  Serious: Yes (Hospitalization)
  Sender: FDA-Public Use
  Company Number: CO-ELI_LILLY_AND_COMPANY-CO201111003750

PATIENT
  Age: 81 Year
  Sex: Male

DRUGS (9)
  1. METFORMIN HCL [Concomitant]
     Dosage: 850 MG, QD
  2. ALLOPURINOL [Concomitant]
     Dosage: 100 MG, QD
  3. BYETTA [Suspect]
     Indication: TYPE 2 DIABETES MELLITUS
     Dosage: 5 UG, BID
     Dates: start: 20110901, end: 20110928
  4. ASPIRIN [Concomitant]
     Dosage: 100 MG, QD
  5. LOSARTAN POTASSIUM [Concomitant]
     Dosage: 100 MG, QD
  6. FUROSEMIDE [Concomitant]
     Dosage: 40 MG, QD
  7. BYETTA [Suspect]
     Dosage: 10 UG, BID
     Dates: start: 20110928, end: 20111004
  8. INSULIN NPH                        /01223208/ [Concomitant]
     Dosage: 10 IU, EACH MORNING
  9. GEMFIBROZIL [Concomitant]
     Dosage: 1200 MG, QD

REACTIONS (12)
  - HAEMATURIA [None]
  - HYPERBILIRUBINAEMIA [None]
  - HAEMORRHAGE [None]
  - HEPATITIS TOXIC [None]
  - GASTROINTESTINAL DISORDER [None]
  - DISCOMFORT [None]
  - BLOOD UREA INCREASED [None]
  - PYREXIA [None]
  - ASTHENIA [None]
  - JAUNDICE [None]
  - DECREASED APPETITE [None]
  - HYPERTRANSAMINASAEMIA [None]
